FAERS Safety Report 4456359-2 (Version None)
Quarter: 2004Q3

REPORT INFORMATION
  Report Type: 
  Country: None (occurrence: None)
  Receive Date: 20040902
  Receipt Date: 20040504
  Transmission Date: 20050211
  Serious: No
  Sender: FDA-Public Use
  Company Number: 200416492BWH

PATIENT
  Age: 73 Year
  Sex: Male
  Weight: 83.9154 kg

DRUGS (7)
  1. LEVITRA [Suspect]
     Dosage: 10 MG, PRN, ORAL; 20 MG, PRN, ORAL
     Route: 048
  2. ATACAND [Concomitant]
  3. TOPROL-XL [Concomitant]
  4. FOLIC ACID [Concomitant]
  5. ASPIRIN [Concomitant]
  6. PROTONIX [Concomitant]
  7. PEPCID AC [Concomitant]

REACTIONS (1)
  - DYSPEPSIA [None]
